FAERS Safety Report 7790506-X (Version None)
Quarter: 2011Q3

REPORT INFORMATION
  Report Type: 
  Country: None (occurrence: None)
  Receive Date: 20110930
  Receipt Date: 20110927
  Transmission Date: 20111222
  Serious: Yes (Death, Hospitalization)
  Sender: FDA-Public Use
  Company Number: PHHO2010TH12750

PATIENT
  Sex: Female
  Weight: 36.5 kg

DRUGS (7)
  1. KAMILLOSAN MUNDSPRAY [Concomitant]
  2. AFINITOR [Suspect]
     Indication: METASTATIC RENAL CELL CARCINOMA
     Dosage: UNK
     Route: 048
     Dates: start: 20100607, end: 20100725
  3. FENTANYL [Concomitant]
  4. AFINITOR [Suspect]
     Dosage: 5MG/DAY
     Route: 048
     Dates: start: 20100726, end: 20100823
  5. SENOKOT [Concomitant]
  6. MORPHINE [Concomitant]
  7. ACYCLOVIR [Concomitant]

REACTIONS (8)
  - NEOPLASM MALIGNANT [None]
  - PALLOR [None]
  - DYSPNOEA [None]
  - HYPOGLYCAEMIA [None]
  - ANAEMIA [None]
  - KARNOFSKY SCALE WORSENED [None]
  - NEOPLASM PROGRESSION [None]
  - FATIGUE [None]
